FAERS Safety Report 4399510-5 (Version None)
Quarter: 2004Q3

REPORT INFORMATION
  Report Type: 
  Country: None (occurrence: None)
  Receive Date: 20040712
  Receipt Date: 20040621
  Transmission Date: 20050211
  Serious: No
  Sender: FDA-Public Use
  Company Number: F01200401566

PATIENT
  Age: 57 Year
  Sex: Male

DRUGS (2)
  1. XATRAL - (ALFUZOSIN) - TABLET PR- 10 MG [Suspect]
     Indication: BENIGN PROSTATIC HYPERPLASIA
     Dosage: 10 MG O ORAL
     Route: 048
     Dates: start: 20020114, end: 20030106
  2. PAXETIL (PAROXETINE HYDROCHLORIDE) [Concomitant]

REACTIONS (1)
  - PANIC ATTACK [None]
